FAERS Safety Report 11939006 (Version 3)
Quarter: 2016Q3

REPORT INFORMATION
  Report Type: Spontaneous
  Country: JP (occurrence: JP)
  Receive Date: 20160122
  Receipt Date: 20160809
  Transmission Date: 20161109
  Serious: Yes (Death, Other)
  Sender: FDA-Public Use
  Company Number: JP-RECORDATI RARE DISEASES-JP-R13005-16-00012

PATIENT
  Age: 0 Year
  Sex: Male
  Weight: 1.23 kg

DRUGS (3)
  1. INDOMETHACIN. [Suspect]
     Active Substance: INDOMETHACIN
     Indication: PATENT DUCTUS ARTERIOSUS
  2. SOLU-CORTEF [Concomitant]
     Active Substance: HYDROCORTISONE SODIUM SUCCINATE
     Indication: CIRCULATORY COLLAPSE
     Route: 042
     Dates: start: 20140627, end: 20140627
  3. INDOMETHACIN. [Suspect]
     Active Substance: INDOMETHACIN
     Indication: HAEMORRHAGE PROPHYLAXIS
     Route: 042
     Dates: start: 20140627

REACTIONS (5)
  - Off label use [Unknown]
  - Hepatic haemorrhage [Fatal]
  - Obstructive defaecation [Fatal]
  - Small intestinal perforation [Fatal]
  - Disseminated intravascular coagulation [Fatal]

NARRATIVE: CASE EVENT DATE: 2014
